FAERS Safety Report 9129290 (Version 1)
Quarter: 2013Q1

REPORT INFORMATION
  Report Type: Spontaneous
  Country: US (occurrence: US)
  Receive Date: 20130228
  Receipt Date: 20130228
  Transmission Date: 20140127
  Serious: No
  Sender: FDA-Public Use
  Company Number: US-ABBOTT-12P-163-1015764-00

PATIENT
  Sex: Female
  Weight: 63.56 kg

DRUGS (1)
  1. ANDROGEL [Suspect]
     Indication: ACCIDENTAL EXPOSURE TO PRODUCT
     Dates: start: 201107

REACTIONS (5)
  - Weight increased [Recovered/Resolved]
  - Alopecia [Recovered/Resolved]
  - Exposure via partner [Not Recovered/Not Resolved]
  - Menopausal symptoms [Recovered/Resolved]
  - Menstrual disorder [Recovered/Resolved]
